FAERS Safety Report 20545045 (Version 1)
Quarter: 2022Q1

REPORT INFORMATION
  Report Type: Spontaneous
  Country: US (occurrence: US)
  Receive Date: 20220303
  Receipt Date: 20220303
  Transmission Date: 20220424
  Serious: No
  Sender: FDA-Public Use
  Company Number: US-ALLERGAN-2132087US

PATIENT
  Age: 83 Year
  Sex: Female

DRUGS (1)
  1. RESTASIS [Suspect]
     Active Substance: CYCLOSPORINE
     Indication: Eye irritation
     Dosage: UNK
     Dates: start: 20210910, end: 20210910

REACTIONS (3)
  - Off label use [Unknown]
  - Eye irritation [Not Recovered/Not Resolved]
  - Eye pain [Not Recovered/Not Resolved]

NARRATIVE: CASE EVENT DATE: 20210910
